FAERS Safety Report 11965474 (Version 1)
Quarter: 2016Q1

REPORT INFORMATION
  Report Type: Spontaneous
  Country: US (occurrence: None)
  Receive Date: 20160125
  Receipt Date: 20160125
  Transmission Date: 20160526
  Serious: Yes (Other)
  Sender: FDA-Public Use
  Company Number: None

PATIENT
  Age: 27 Year
  Sex: Female
  Weight: 79.38 kg

DRUGS (7)
  1. CITALOPRAM [Concomitant]
     Active Substance: CITALOPRAM HYDROBROMIDE
  2. VITAMIN D [Concomitant]
     Active Substance: CHOLECALCIFEROL
  3. PRENATAL VITAMINS [Concomitant]
     Active Substance: VITAMINS
  4. CRANBERRY PILLS [Concomitant]
  5. VITAMIN GUMMIES FOR ADULTS [Concomitant]
  6. GEODON [Suspect]
     Active Substance: ZIPRASIDONE HYDROCHLORIDE\ZIPRASIDONE MESYLATE
     Indication: MOOD ALTERED
     Dosage: 1
     Route: 048
     Dates: start: 20150801, end: 20150821
  7. RESPERIDONE [Concomitant]

REACTIONS (2)
  - Visual impairment [None]
  - Vision blurred [None]

NARRATIVE: CASE EVENT DATE: 20150817
